FAERS Safety Report 12680049 (Version 1)
Quarter: 2016Q3

REPORT INFORMATION
  Report Type: Report from Study
  Country: US (occurrence: US)
  Receive Date: 20160824
  Receipt Date: 20160824
  Transmission Date: 20161109
  Serious: Yes (Hospitalization, Other)
  Sender: FDA-Public Use
  Company Number: US-ARIAD-2013US001841

PATIENT

DRUGS (1)
  1. ICLUSIG [Suspect]
     Active Substance: PONATINIB
     Indication: CHRONIC MYELOID LEUKAEMIA
     Dosage: 45 MG, QD
     Route: 048
     Dates: start: 20130501

REACTIONS (4)
  - Anaphylactic shock [Recovered/Resolved]
  - Renal failure [Recovered/Resolved]
  - Leukaemia recurrent [Unknown]
  - Blast cell crisis [Recovered/Resolved]

NARRATIVE: CASE EVENT DATE: 20130610
